FAERS Safety Report 18992437 (Version 2)
Quarter: 2021Q3

REPORT INFORMATION
  Report Type: Report from Study
  Country: FI (occurrence: FI)
  Receive Date: 20210310
  Receipt Date: 20210813
  Transmission Date: 20211014
  Serious: Yes (Hospitalization, Other)
  Sender: FDA-Public Use
  Company Number: FI-ASPEN-GLO2021FI001286

PATIENT

DRUGS (35)
  1. DEXAMETHASONE. [Suspect]
     Active Substance: DEXAMETHASONE
     Indication: NEUROTOXICITY
     Dosage: 10 MG, 1 DOSE 8 HOURS
     Route: 042
     Dates: start: 20201128, end: 20201129
  2. DEXAMETHASONE. [Suspect]
     Active Substance: DEXAMETHASONE
     Indication: NEUROLOGICAL SYMPTOM
     Dosage: 6 MG, 1 DOSE 12 HOURS
     Route: 048
     Dates: start: 20210118, end: 20210122
  3. OXYCONTIN [Suspect]
     Active Substance: OXYCODONE HYDROCHLORIDE
     Dosage: 80 MG, 1 DOSE 12 HOURS
     Route: 048
     Dates: start: 20201122
  4. OXYCONTIN [Suspect]
     Active Substance: OXYCODONE HYDROCHLORIDE
     Dosage: 20 MG, 1 DOSE 12 HOURS
     Route: 048
     Dates: start: 20201007
  5. OXYCONTIN [Suspect]
     Active Substance: OXYCODONE HYDROCHLORIDE
     Dosage: UNK, PRN
     Route: 048
     Dates: start: 20200819
  6. OXYCONTIN [Suspect]
     Active Substance: OXYCODONE HYDROCHLORIDE
     Dosage: 60 MG, 1 DOSE DAILY
     Route: 048
     Dates: start: 20201121
  7. SOMAC [Concomitant]
     Active Substance: PANTOPRAZOLE SODIUM
     Indication: PROPHYLAXIS
     Dosage: 40 MG, 1 DOSE 24 HOURS
     Route: 048
     Dates: start: 20201006
  8. FURESIS [Concomitant]
     Active Substance: FUROSEMIDE
     Indication: OEDEMA PERIPHERAL
     Dosage: 40 MG, 1 DOSE 24 HOURS
     Route: 048
     Dates: start: 20201118
  9. CEFTRIAXONE. [Concomitant]
     Active Substance: CEFTRIAXONE
     Indication: PROPHYLAXIS
     Dosage: 2 G, 1 DOSE 24 HOURS
     Route: 042
     Dates: start: 20201121
  10. DEXAMETHASONE. [Suspect]
     Active Substance: DEXAMETHASONE
     Indication: PYREXIA
     Dosage: 10 MG, 1 DOSE 12 HOURS
     Route: 048
     Dates: start: 20210115, end: 20210118
  11. OXYCONTIN [Suspect]
     Active Substance: OXYCODONE HYDROCHLORIDE
     Indication: NEURALGIA
     Dosage: 30 MG, 1 DOSE 12 HOURS
     Route: 048
     Dates: start: 20201121
  12. FLUDARABINE [Suspect]
     Active Substance: FLUDARABINE PHOSPHATE
     Indication: B-CELL LYMPHOMA
     Dosage: 30 MG/M2, QD
     Route: 042
     Dates: start: 20201111, end: 20201113
  13. FURESIS [Concomitant]
     Active Substance: FUROSEMIDE
     Dosage: 20 MG, 1 DOSE 24 HOURS
     Route: 048
     Dates: start: 20201215, end: 20210111
  14. FILGRASTIM [Concomitant]
     Active Substance: FILGRASTIM
     Indication: NEUTROPENIA
     Dosage: 48000000 IU, 1 DOSE 24 HOURS
     Route: 058
     Dates: start: 20201125
  15. COTRIM FORTE [Concomitant]
     Active Substance: SULFAMETHOXAZOLE\TRIMETHOPRIM
     Indication: INFECTION PROPHYLAXIS
     Dosage: 3 DOSAGE FORM, 1 DOSE WEEKLY
     Route: 048
     Dates: start: 20200819
  16. DEXAMETHASONE. [Suspect]
     Active Substance: DEXAMETHASONE
     Indication: MUSCULAR WEAKNESS
     Dosage: 10 MG, 1 DOSE 24 HOURS
     Route: 042
     Dates: start: 20201121
  17. TOCILIZUMAB. [Suspect]
     Active Substance: TOCILIZUMAB
     Indication: CYTOKINE RELEASE SYNDROME
     Dosage: 760 MG, SINGLE
     Route: 042
     Dates: start: 20201121
  18. LEVETIRACETAM. [Concomitant]
     Active Substance: LEVETIRACETAM
     Indication: NEUROTOXICITY
     Dosage: 1000 MG, 1 DOSE 12 HOURS
     Route: 048
     Dates: start: 20201125
  19. ONDANSETRON [Concomitant]
     Active Substance: ONDANSETRON
     Indication: NAUSEA
     Dosage: 16 MG, 1 DOSE 12 HOURS
     Route: 048
     Dates: start: 20201118
  20. DEXAMETHASONE. [Suspect]
     Active Substance: DEXAMETHASONE
     Indication: STEROID THERAPY
     Dosage: 20 MG, 1 DOSE 8 HOURS
     Route: 042
     Dates: start: 20201126
  21. DEXAMETHASONE. [Suspect]
     Active Substance: DEXAMETHASONE
     Indication: CENTRAL NERVOUS SYSTEM LYMPHOMA
     Dosage: 10 MG, 1 DOSE 8 HOURS
     Route: 042
     Dates: start: 20201125
  22. DEXAMETHASONE. [Suspect]
     Active Substance: DEXAMETHASONE
     Dosage: 4 MG, 1 DOSE 12 HOURS
     Route: 048
     Dates: start: 20201202, end: 20201203
  23. FURESIS [Concomitant]
     Active Substance: FUROSEMIDE
     Dosage: 20 MG, 1 DOSE 24 HOURS
     Route: 048
     Dates: start: 20201112
  24. PEGORION [Concomitant]
     Active Substance: POLYETHYLENE GLYCOL 4000
     Indication: CONSTIPATION PROPHYLAXIS
     Dosage: 24 MG, 1 DOSE 12 HOURS
     Route: 048
     Dates: start: 20201120
  25. DEXAMETHASONE. [Suspect]
     Active Substance: DEXAMETHASONE
     Indication: PROPHYLAXIS
     Dosage: 6 MG, 1 DOSE 12 HOURS
     Route: 048
     Dates: start: 20201130, end: 20201201
  26. TOCILIZUMAB. [Suspect]
     Active Substance: TOCILIZUMAB
     Indication: PYREXIA
     Dosage: UNK
     Route: 065
  27. PREDNISOLONE. [Concomitant]
     Active Substance: PREDNISOLONE
     Dosage: 20 MG, 1 DOSE 24 HOURS
     Route: 048
     Dates: start: 20201210, end: 20201228
  28. OXYCONTIN [Suspect]
     Active Substance: OXYCODONE HYDROCHLORIDE
     Dosage: UNK UNK, PRN
     Route: 048
     Dates: start: 20201121
  29. OXYCONTIN [Suspect]
     Active Substance: OXYCODONE HYDROCHLORIDE
     Dosage: 40 MG, Q12H
     Route: 048
     Dates: start: 20201007
  30. CYCLOPHOSPHAMIDE. [Suspect]
     Active Substance: CYCLOPHOSPHAMIDE
     Indication: B-CELL LYMPHOMA
     Dosage: 300 MG/M2, QD
     Route: 042
     Dates: start: 20201111, end: 20201113
  31. PREDNISOLONE. [Concomitant]
     Active Substance: PREDNISOLONE
     Indication: STEROID THERAPY
     Dosage: 10 MG, 1 DOSE 24 HOURS
     Route: 048
     Dates: start: 20201204, end: 20201210
  32. DEXAMETHASONE. [Suspect]
     Active Substance: DEXAMETHASONE
     Indication: CYTOKINE RELEASE SYNDROME
     Dosage: 9 MG, 1 DOSE 8 HOURS
     Route: 048
     Dates: start: 20201129, end: 20201130
  33. DEXAMETHASONE. [Suspect]
     Active Substance: DEXAMETHASONE
     Dosage: 10 MG, QD (6 PLUS 4 MG, 1 IN 12 HOURS)
     Route: 048
     Dates: start: 20210123
  34. DEXAMETHASONE. [Suspect]
     Active Substance: DEXAMETHASONE
     Dosage: 6 MG IN 24 H
     Route: 048
     Dates: start: 20210213
  35. OXYCONTIN [Suspect]
     Active Substance: OXYCODONE HYDROCHLORIDE
     Indication: CANCER PAIN
     Dosage: 10 MG, 1 DOSE 12 HOURS
     Route: 048
     Dates: start: 20201221, end: 20201228

REACTIONS (6)
  - Constipation [Recovered/Resolved]
  - Tremor [Unknown]
  - Dizziness [Unknown]
  - Impaired self-care [Unknown]
  - Urinary retention [Unknown]
  - Muscular weakness [Recovered/Resolved with Sequelae]

NARRATIVE: CASE EVENT DATE: 20210110
